FAERS Safety Report 9907120 (Version 1)
Quarter: 2014Q1

REPORT INFORMATION
  Report Type: Spontaneous
  Country: US (occurrence: US)
  Receive Date: 20140218
  Receipt Date: 20140218
  Transmission Date: 20141002
  Serious: Yes (Other)
  Sender: FDA-Public Use
  Company Number: US-PFIZER INC-2014044990

PATIENT
  Age: 73 Year
  Sex: Male

DRUGS (1)
  1. DILANTIN [Suspect]
     Indication: PAIN
     Dosage: 2 G (ONLY RECEIVED ONCE)
     Route: 042
     Dates: start: 20140211

REACTIONS (3)
  - Off label use [Unknown]
  - Loss of consciousness [Unknown]
  - Oxygen saturation decreased [Unknown]
